FAERS Safety Report 25406155 (Version 1)
Quarter: 2025Q2

REPORT INFORMATION
  Report Type: Spontaneous
  Country: IT (occurrence: IT)
  Receive Date: 20250606
  Receipt Date: 20250606
  Transmission Date: 20250717
  Serious: Yes (Other)
  Sender: AMGEN
  Company Number: IT-UCBSA-2025032135

PATIENT
  Age: 69 Year
  Sex: Female

DRUGS (3)
  1. EVENITY [Suspect]
     Active Substance: ROMOSOZUMAB-AQQG
     Indication: Osteoporosis postmenopausal
     Dosage: 210 MILLIGRAM, MONTHLY (QM)
     Route: 065
     Dates: start: 202501
  2. Tiche [Concomitant]
     Indication: Thyroid mass
  3. CALCIFEDIOL [Concomitant]
     Active Substance: CALCIFEDIOL
     Indication: Thyroid mass

REACTIONS (5)
  - Lumbar vertebral fracture [Recovering/Resolving]
  - Vertebroplasty [Recovering/Resolving]
  - Blood calcium increased [Recovering/Resolving]
  - Vitamin D increased [Recovering/Resolving]
  - Blood parathyroid hormone abnormal [Recovered/Resolved]

NARRATIVE: CASE EVENT DATE: 20250101
